FAERS Safety Report 12263206 (Version 1)
Quarter: 2016Q2

REPORT INFORMATION
  Report Type: Spontaneous
  Country: US (occurrence: US)
  Receive Date: 20160413
  Receipt Date: 20160413
  Transmission Date: 20160815
  Serious: No
  Sender: FDA-Public Use
  Company Number: US-PFIZER INC-2016134196

PATIENT
  Age: 50 Year
  Sex: Female

DRUGS (6)
  1. ESTRADIOL-NORETHISTERONE [Concomitant]
     Dosage: UNK (ESTRADIOL-1.0MG NORETHISTERONE-0.5MG)
  2. LYRICA [Suspect]
     Active Substance: PREGABALIN
     Indication: PHARYNGITIS
     Dosage: 100 MG, DAILY
  3. PROPRANOLOL ER [Concomitant]
     Dosage: 80 MG, UNK
  4. SUMATRIPTAN. [Concomitant]
     Active Substance: SUMATRIPTAN
     Dosage: 100 MG, UNK
  5. NAPROXEN SODIUM. [Concomitant]
     Active Substance: NAPROXEN SODIUM
     Dosage: 500 MG, UNK
  6. ZYRTEC [Concomitant]
     Active Substance: CETIRIZINE HYDROCHLORIDE
     Dosage: 10 MG, UNK

REACTIONS (2)
  - Product use issue [Unknown]
  - Pain [Unknown]
